FAERS Safety Report 10593361 (Version 1)
Quarter: 2014Q4

REPORT INFORMATION
  Report Type: Spontaneous
  Country: TR (occurrence: TR)
  Receive Date: 20141119
  Receipt Date: 20141119
  Transmission Date: 20150529
  Serious: Yes (Other)
  Sender: FDA-Public Use
  Company Number: TR-ALEXION PHARMACEUTICALS INC-A201404370

PATIENT

DRUGS (3)
  1. SOLIRIS [Suspect]
     Active Substance: ECULIZUMAB
     Indication: OFF LABEL USE
  2. SOLIRIS [Suspect]
     Active Substance: ECULIZUMAB
     Indication: HAEMOLYTIC ANAEMIA
  3. SOLIRIS [Suspect]
     Active Substance: ECULIZUMAB
     Indication: GLOMERULONEPHRITIS MEMBRANOPROLIFERATIVE
     Route: 042

REACTIONS (4)
  - Condition aggravated [Unknown]
  - Off label use [Unknown]
  - Proteinuria [Unknown]
  - Haemoglobin decreased [Unknown]
